FAERS Safety Report 10527711 (Version 2)
Quarter: 2014Q4

REPORT INFORMATION
  Report Type: Spontaneous
  Country: CN (occurrence: CN)
  Receive Date: 20141020
  Receipt Date: 20141022
  Transmission Date: 20150528
  Serious: Yes (Other)
  Sender: FDA-Public Use
  Company Number: CN-SA-2014SA139716

PATIENT
  Age: 70 Year
  Sex: Male
  Weight: 65 kg

DRUGS (7)
  1. PLAVIX [Suspect]
     Active Substance: CLOPIDOGREL BISULFATE
     Indication: THROMBOSIS
     Route: 048
     Dates: start: 20140505
  2. VASOREL [Concomitant]
     Route: 048
     Dates: start: 20140505
  3. NATRILIX [Concomitant]
     Active Substance: INDAPAMIDE
     Route: 048
     Dates: start: 20140505
  4. PERINDOPRIL [Concomitant]
     Active Substance: PERINDOPRIL
     Route: 048
     Dates: start: 20140505, end: 201410
  5. ASPIRIN. [Concomitant]
     Active Substance: ASPIRIN
     Dosage: FORM: ENTERIC COATED TABLETS
     Route: 048
     Dates: start: 20140505
  6. LIPITOR [Concomitant]
     Active Substance: ATORVASTATIN CALCIUM
     Route: 048
     Dates: start: 20140505
  7. METOPROLOL [Concomitant]
     Active Substance: METOPROLOL
     Route: 048
     Dates: start: 20140505

REACTIONS (2)
  - Angina pectoris [Recovered/Resolved]
  - Product counterfeit [Unknown]

NARRATIVE: CASE EVENT DATE: 20141009
